FAERS Safety Report 21012630 (Version 1)
Quarter: 2022Q2

REPORT INFORMATION
  Report Type: Spontaneous
  Country: US (occurrence: US)
  Receive Date: 20220627
  Receipt Date: 20220627
  Transmission Date: 20220721
  Serious: No
  Sender: FDA-Public Use
  Company Number: US-MAYNE PHARMA-2021MYN000646

PATIENT
  Age: 73 Year
  Sex: Female

DRUGS (3)
  1. LEXETTE [Suspect]
     Active Substance: HALOBETASOL PROPIONATE
     Indication: Psoriasis
     Dosage: UNK
     Route: 061
     Dates: start: 202110
  2. LEXETTE [Suspect]
     Active Substance: HALOBETASOL PROPIONATE
     Indication: Psoriasis
  3. LEXETTE [Suspect]
     Active Substance: HALOBETASOL PROPIONATE
     Indication: Psoriasis

REACTIONS (1)
  - Alopecia [Unknown]

NARRATIVE: CASE EVENT DATE: 20211001
